FAERS Safety Report 5596443-3 (Version None)
Quarter: 2008Q1

REPORT INFORMATION
  Report Type: 
  Country: None (occurrence: None)
  Receive Date: 20080118
  Receipt Date: 20080108
  Transmission Date: 20080703
  Serious: Yes (Disabling)
  Sender: FDA-Public Use
  Company Number: FI-PFIZER INC-2005162001

PATIENT
  Sex: Female

DRUGS (5)
  1. CABERGOLINE [Suspect]
     Indication: PARKINSON'S DISEASE
     Route: 048
  2. CABERGOLINE [Suspect]
     Route: 048
  3. ELDEPRYL [Concomitant]
     Indication: PARKINSON'S DISEASE
     Route: 048
  4. ATARIN [Concomitant]
     Indication: PARKINSON'S DISEASE
     Route: 048
  5. SIRDALUD [Concomitant]
     Indication: HYPERTONIA
     Route: 048

REACTIONS (2)
  - AORTIC VALVE INCOMPETENCE [None]
  - VENTRICULAR DYSFUNCTION [None]
